FAERS Safety Report 26131734 (Version 1)
Quarter: 2025Q4

REPORT INFORMATION
  Report Type: Spontaneous
  Country: US (occurrence: None)
  Receive Date: 20251208
  Receipt Date: 20251208
  Transmission Date: 20260118
  Serious: No
  Sender: FDA-CTU
  Company Number: None

PATIENT

DRUGS (4)
  1. ACETYLCYSTEINE [Suspect]
     Active Substance: ACETYLCYSTEINE
     Dosage: OTHER STRENGTH : 6G/30ML;
     Route: 042
  2. ACETYLCYSTEINE [Suspect]
     Active Substance: ACETYLCYSTEINE
     Route: 055
  3. ACETYLCYSTEINE [Suspect]
     Active Substance: ACETYLCYSTEINE
     Dosage: OTHER STRENGTH : 6G/30 ML;
     Route: 042
  4. ACETYLCYSTEINE [Suspect]
     Active Substance: ACETYLCYSTEINE
     Route: 055

REACTIONS (9)
  - Incorrect route of product administration [None]
  - Product preparation error [None]
  - Product label confusion [None]
  - Product label issue [None]
  - Device computer issue [None]
  - Device monitoring procedure not performed [None]
  - Product dispensing error [None]
  - Incorrect dosage administered [None]
  - Packaging design issue [None]
